FAERS Safety Report 5014244-1 (Version None)
Quarter: 2006Q2

REPORT INFORMATION
  Report Type: 
  Country: None (occurrence: None)
  Receive Date: 20060414
  Receipt Date: 20060105
  Transmission Date: 20061013
  Serious: No
  Sender: FDA-Public Use
  Company Number: 2005SP004411

PATIENT
  Age: 61 Year
  Sex: Female
  Weight: 122.4712 kg

DRUGS (9)
  1. LUNESTA [Suspect]
     Indication: INSOMNIA
     Dosage: SEE IMAGE
     Route: 048
     Dates: start: 20051101, end: 20051201
  2. LUNESTA [Suspect]
     Indication: INSOMNIA
     Dosage: SEE IMAGE
     Route: 048
     Dates: start: 20051201
  3. PERCOCET [Concomitant]
  4. ATENOLOL [Concomitant]
  5. GLYBURIDE [Concomitant]
  6. AVANDIA [Concomitant]
  7. PAXIL [Concomitant]
  8. LISINOPRIL [Concomitant]
  9. AMBIEN [Concomitant]

REACTIONS (2)
  - DRUG EFFECT DECREASED [None]
  - DYSGEUSIA [None]
